FAERS Safety Report 14800366 (Version 6)
Quarter: 2019Q1

REPORT INFORMATION
  Report Type: Spontaneous
  Country: US (occurrence: US)
  Receive Date: 20180424
  Receipt Date: 20190130
  Transmission Date: 20190417
  Serious: Yes (Hospitalization, Other)
  Sender: FDA-Public Use
  Company Number: US-PFIZER INC-2018166916

PATIENT
  Age: 61 Year
  Sex: Female
  Weight: 79.38 kg

DRUGS (14)
  1. VFEND [Suspect]
     Active Substance: VORICONAZOLE
     Indication: LIVER TRANSPLANT
     Dosage: 200 MG, DAILY
     Route: 048
  2. VFEND [Suspect]
     Active Substance: VORICONAZOLE
     Dosage: 400 MG, DAILY [TAKE 2 PO DAILY]
     Route: 048
  3. NEORAL [Concomitant]
     Active Substance: CYCLOSPORINE
     Dosage: 75 MG, 2X/DAY (TAKE 3 TABLETS BY ORAL ROUTE AM AND PM)
     Route: 048
  4. VFEND [Suspect]
     Active Substance: VORICONAZOLE
     Indication: FUNGAL INFECTION
     Dosage: 200 MG, 2X/DAY(TAKE 1 TABLET BY ORAL ROUTE EVERY 12 HOURS AT LEAST 1 HOUR BEFORE OR 1 HR AFTER AM )
     Route: 048
     Dates: start: 201504
  5. HUMALOG [Concomitant]
     Active Substance: INSULIN LISPRO
     Dosage: UNK (100 UNIT/M, USE PER SLIDING SCALE)
  6. PROCHLORPERAZINE MALEATE. [Concomitant]
     Active Substance: PROCHLORPERAZINE MALEATE
     Indication: VOMITING
  7. COLACE [Concomitant]
     Active Substance: DOCUSATE SODIUM
     Dosage: 100 MG, AS NEEDED(2 TIMES EVERY DAY AS NEEDED)
     Route: 048
  8. NADOLOL. [Concomitant]
     Active Substance: NADOLOL
     Dosage: 20 MG, DAILY (TAKE 1 TABLET BY ORAL ROUTE EVERY DAY)
     Route: 048
  9. ASPIRIN EC [Concomitant]
     Active Substance: ASPIRIN
     Dosage: 81 MG, DAILY (TAKE 1 TABLET BY ORAL ROUTE EVERY DAY)
     Route: 048
  10. PROCHLORPERAZINE MALEATE. [Concomitant]
     Active Substance: PROCHLORPERAZINE MALEATE
     Indication: NAUSEA
     Dosage: 10 MG, AS NEEDED(TAKE 1 TABLET BY ORAL ROUTE EVERY 6 HOURS PRN NAUSEA OR VOMITING)
     Route: 048
  11. FAMOTIDINE. [Concomitant]
     Active Substance: FAMOTIDINE
     Dosage: 20 MG, DAILY (TAKE 1 TABLET BY ORAL ROUTE EVERY DAY)
     Route: 048
  12. LANTUS [Concomitant]
     Active Substance: INSULIN GLARGINE
     Dosage: INJECT 22 UNITS SQ EVERY AM (100 UNIT/M)
  13. HYDROCODONE/ACETAMINOPHEN [Concomitant]
     Active Substance: ACETAMINOPHEN\HYDROCODONE
     Indication: PAIN
     Dosage: 10MG-325, TAKE 1/2 TO 1 TABLET BY ORAL ROUTE DAILY AS NEEDED
     Route: 048
  14. KEPPRA [Concomitant]
     Active Substance: LEVETIRACETAM
     Dosage: 500 MG, 2X/DAY (TAKE 1 TABLET BY ORAL ROUTE 2 TIMES EVERY DAY)
     Route: 048

REACTIONS (2)
  - Rectal cancer [Not Recovered/Not Resolved]
  - Skin cancer [Not Recovered/Not Resolved]

NARRATIVE: CASE EVENT DATE: 2017
